FAERS Safety Report 23669636 (Version 2)
Quarter: 2024Q2

REPORT INFORMATION
  Report Type: Report from Study
  Country: JP (occurrence: None)
  Receive Date: 20240325
  Receipt Date: 20240402
  Transmission Date: 20240716
  Serious: Yes (Hospitalization, Other)
  Sender: FDA-Public Use
  Company Number: 2023A141023

PATIENT
  Age: 93 Year
  Sex: Male
  Weight: 58 kg

DRUGS (3)
  1. IMFINZI [Suspect]
     Active Substance: DURVALUMAB
     Indication: Hepatocellular carcinoma
     Route: 041
     Dates: start: 20230519, end: 20230519
  2. IMJUDO [Suspect]
     Active Substance: TREMELIMUMAB\TREMELIMUMAB-ACTL
     Indication: Hepatocellular carcinoma
     Route: 041
     Dates: start: 20230519, end: 20230519
  3. UNSPECIFIED INGREDIENT [Concomitant]
     Active Substance: UNSPECIFIED INGREDIENT
     Indication: Cardiac disorder
     Dosage: DOSE UNKNOWN
     Route: 048

REACTIONS (2)
  - Enterocolitis [Not Recovered/Not Resolved]
  - Performance status decreased [Unknown]

NARRATIVE: CASE EVENT DATE: 20230607
